FAERS Safety Report 8417241 (Version 3)
Quarter: 2015Q4

REPORT INFORMATION
  Report Type: Report from Study
  Country: US (occurrence: US)
  Receive Date: 20120220
  Receipt Date: 20151105
  Transmission Date: 20160305
  Serious: Yes (Other)
  Sender: FDA-Public Use
  Company Number: US-ROCHE-1038592

PATIENT

DRUGS (2)
  1. BEVACIZUMAB [Suspect]
     Active Substance: BEVACIZUMAB
     Indication: HEAD AND NECK CANCER
     Route: 041
  2. DOCETAXEL. [Suspect]
     Active Substance: DOCETAXEL
     Indication: HEAD AND NECK CANCER
     Route: 065

REACTIONS (9)
  - Cholecystitis [Unknown]
  - Dysphagia [Unknown]
  - Deep vein thrombosis [Unknown]
  - Dermatitis [Unknown]
  - Weight decreased [Unknown]
  - Lymphopenia [Unknown]
  - Dehydration [Unknown]
  - Infection [Unknown]
  - Mucosal inflammation [Unknown]
